FAERS Safety Report 8809678 (Version 1)
Quarter: 2012Q4

REPORT INFORMATION
  Report Type: 
  Country: AU (occurrence: AU)
  Receive Date: 20120926
  Receipt Date: 20120926
  Transmission Date: 20130627
  Serious: Yes (Other)
  Sender: FDA-Public Use
  Company Number: AU-BAXTER-2012BAX017707

PATIENT
  Sex: Female

DRUGS (4)
  1. GLUCOSE [Suspect]
     Indication: MEDICATION DILUTION
     Route: 042
  2. SODIUM CHLORIDE [Suspect]
     Indication: MEDICATION DILUTION
     Route: 042
  3. CARBOPLATIN [Suspect]
     Indication: CHEMOTHERAPY
     Dosage: 460 MG/46 MG
     Route: 042
  4. GEMCITABINA TEVA [Suspect]
     Indication: CHEMOTHERAPY
     Dosage: 2038 MG/53.6 MG
     Route: 042

REACTIONS (3)
  - Vertebral artery thrombosis [Unknown]
  - Cerebrovascular accident [Unknown]
  - Rash [Unknown]
